FAERS Safety Report 16271320 (Version 1)
Quarter: 2019Q2

REPORT INFORMATION
  Report Type: Spontaneous
  Country: DE (occurrence: DE)
  Receive Date: 20190503
  Receipt Date: 20190503
  Transmission Date: 20190711
  Serious: Yes (Other)
  Sender: FDA-Public Use
  Company Number: DE-MYLANLABS-2019M1042251

PATIENT
  Sex: Female

DRUGS (1)
  1. LAMOTRIGIN DURA [Suspect]
     Active Substance: LAMOTRIGINE
     Indication: EPILEPSY
     Dosage: UNK, USUAL DOSAGE
     Route: 048

REACTIONS (3)
  - Seizure [Unknown]
  - Disturbance in attention [Unknown]
  - Product packaging issue [Unknown]
